FAERS Safety Report 16413193 (Version 4)
Quarter: 2021Q1

REPORT INFORMATION
  Report Type: Spontaneous
  Country: FR (occurrence: FR)
  Receive Date: 20190611
  Receipt Date: 20210122
  Transmission Date: 20210419
  Serious: Yes (Life-Threatening, Hospitalization, Other)
  Sender: FDA-Public Use
  Company Number: FR-AUROBINDO-AUR-APL-2019-031670

PATIENT
  Age: 54 Year
  Sex: Male

DRUGS (2)
  1. AMOXICILLIN. [Suspect]
     Active Substance: AMOXICILLIN
     Indication: BRONCHITIS
     Dosage: UNK, DISCONTINUED AFTER 48 HOURS FROM FIRST ADMINISTRATION
     Route: 065
  2. AZITHROMYCIN ANHYDROUS. [Concomitant]
     Active Substance: AZITHROMYCIN ANHYDROUS
     Indication: BRONCHITIS
     Dosage: UNK
     Route: 065

REACTIONS (8)
  - Hyponatraemia [Recovered/Resolved]
  - Leukocytosis [Recovering/Resolving]
  - Acute kidney injury [Recovered/Resolved]
  - Acute generalised exanthematous pustulosis [Unknown]
  - Hepatocellular injury [Recovered/Resolved]
  - Eosinophilia [Recovered/Resolved]
  - Rash erythematous [Unknown]
  - Toxicity to various agents [Recovering/Resolving]
